FAERS Safety Report 15523173 (Version 3)
Quarter: 2021Q1

REPORT INFORMATION
  Report Type: Spontaneous
  Country: BR (occurrence: BR)
  Receive Date: 20181018
  Receipt Date: 20210201
  Transmission Date: 20210419
  Serious: Yes (Other)
  Sender: FDA-Public Use
  Company Number: BR-IPSEN BIOPHARMACEUTICALS, INC.-2018-04453

PATIENT
  Age: 51 Year
  Sex: Male

DRUGS (18)
  1. SIBUTRAMINE [Concomitant]
     Active Substance: SIBUTRAMINE
     Route: 048
  2. GLIFAGE [Concomitant]
     Active Substance: METFORMIN HYDROCHLORIDE
     Indication: DIABETES MELLITUS
     Route: 048
     Dates: start: 2008
  3. CABERGOLINE. [Concomitant]
     Active Substance: CABERGOLINE
     Indication: BLOOD GROWTH HORMONE ABNORMAL
     Dosage: 3 TABLETS/DAY
  4. HYDROXYZINE [Concomitant]
     Active Substance: HYDROXYZINE HYDROCHLORIDE
     Route: 048
     Dates: start: 2008
  5. TENOFOVIR [Concomitant]
     Active Substance: TENOFOVIR
     Indication: HEPATITIS
     Route: 048
     Dates: start: 2008
  6. VITAMIN [Concomitant]
     Active Substance: VITAMINS
     Dates: start: 20180504
  7. LOSARTAN. [Concomitant]
     Active Substance: LOSARTAN
     Indication: HYPERTENSION
     Route: 048
     Dates: start: 2017
  8. CABERGOLINE. [Concomitant]
     Active Substance: CABERGOLINE
     Dosage: CABERGOLINE 5MG, 1 TABLET PER DAY FROM SUNDAY TO THURSDAY
  9. SOMATULINE AUTOGEL [Suspect]
     Active Substance: LANREOTIDE ACETATE
     Indication: ACROMEGALY
     Dosage: SITE: BUTTOCKS
     Route: 030
     Dates: start: 201606, end: 2020
  10. SOMATULINE AUTOGEL [Suspect]
     Active Substance: LANREOTIDE ACETATE
     Dosage: 2 INJECTIONS OF 40 MG EVERY 28 DAYS
     Route: 065
     Dates: start: 2020
  11. CABERGOLINE. [Concomitant]
     Active Substance: CABERGOLINE
     Indication: PITUITARY TUMOUR
     Route: 048
     Dates: start: 201804
  12. SELOZOK [Concomitant]
     Active Substance: METOPROLOL SUCCINATE
     Indication: HYPERTENSION
     Route: 048
     Dates: start: 2017
  13. AMLODIPINE [Concomitant]
     Active Substance: AMLODIPINE BESYLATE
     Indication: HYPERTENSION
     Route: 048
     Dates: start: 2008
  14. CABERGOLINE. [Concomitant]
     Active Substance: CABERGOLINE
     Dosage: FRIDAY AND SATURDAY 2 TABLETS
  15. NEVRIX [Concomitant]
     Indication: DIZZINESS
     Dates: start: 201805
  16. VALSARTAN. [Concomitant]
     Active Substance: VALSARTAN
     Indication: HYPERTENSION
     Route: 048
     Dates: start: 2008
  17. CABERGOLINE. [Concomitant]
     Active Substance: CABERGOLINE
     Indication: INSULIN-LIKE GROWTH FACTOR ABNORMAL
     Dosage: FOR 5 MONTHS
  18. DEPOSTERON [Concomitant]
     Active Substance: TESTOSTERONE
     Indication: HORMONE REPLACEMENT THERAPY
     Dates: start: 2016

REACTIONS (22)
  - Vomiting [Recovered/Resolved]
  - Burning sensation [Not Recovered/Not Resolved]
  - Muscle spasms [Not Recovered/Not Resolved]
  - Erythema [Recovered/Resolved]
  - Sensory loss [Not Recovered/Not Resolved]
  - Asthenia [Recovered/Resolved]
  - Fatigue [Not Recovered/Not Resolved]
  - Off label use [Unknown]
  - Dengue fever [Recovered/Resolved]
  - Pain in extremity [Not Recovered/Not Resolved]
  - Paraesthesia [Not Recovered/Not Resolved]
  - Vision blurred [Not Recovered/Not Resolved]
  - Lipoma [Not Recovered/Not Resolved]
  - Bone pain [Not Recovered/Not Resolved]
  - Drug ineffective [Unknown]
  - Incorrect route of product administration [Unknown]
  - Dizziness [Recovered/Resolved]
  - Arthralgia [Recovered/Resolved]
  - Muscle spasms [Recovered/Resolved]
  - Neoplasm progression [Not Recovered/Not Resolved]
  - Pain [Not Recovered/Not Resolved]
  - Swelling [Recovered/Resolved]

NARRATIVE: CASE EVENT DATE: 201606
